FAERS Safety Report 9131567 (Version 3)
Quarter: 2013Q3

REPORT INFORMATION
  Report Type: Spontaneous
  Country: US (occurrence: US)
  Receive Date: 20130301
  Receipt Date: 20130709
  Transmission Date: 20140515
  Serious: Yes (Other)
  Sender: FDA-Public Use
  Company Number: US-PFIZER INC-2013067978

PATIENT
  Age: 27 Year
  Sex: Male
  Weight: 84.81 kg

DRUGS (3)
  1. BENEFIX [Suspect]
     Indication: HAEMOPHILIA
     Dosage: 2 TIMES PER WEEK
  2. BENEFIX [Suspect]
     Indication: FACTOR IX DEFICIENCY
  3. BENEFIX [Suspect]
     Indication: PROPHYLAXIS

REACTIONS (2)
  - Haemorrhage [Unknown]
  - Disease complication [Unknown]
